FAERS Safety Report 6382352-9 (Version None)
Quarter: 2009Q3

REPORT INFORMATION
  Report Type: 
  Country: None (occurrence: None)
  Receive Date: 20090928
  Receipt Date: 20090928
  Transmission Date: 20100115
  Serious: Yes (Hospitalization)
  Sender: FDA-Public Use
  Company Number: None

PATIENT
  Age: 50 Year
  Sex: Male
  Weight: 77 kg

DRUGS (6)
  1. FLUORESCITE [Suspect]
     Indication: ANGIOGRAM
     Dosage: 500 MG IVP X 1 DOSE
     Route: 042
     Dates: start: 20081202
  2. TRIAMANOLONE INJ. [Concomitant]
  3. FLUORESCEN [Concomitant]
  4. DIPHENHYDRAMINE HCL [Concomitant]
  5. TROPICAMIDE [Concomitant]
  6. PHENYLEPHRINE [Concomitant]

REACTIONS (4)
  - CARDIO-RESPIRATORY ARREST [None]
  - FLUSHING [None]
  - SYNCOPE [None]
  - VISION BLURRED [None]
